FAERS Safety Report 24881973 (Version 2)
Quarter: 2025Q1

REPORT INFORMATION
  Report Type: Report from Study
  Country: US (occurrence: US)
  Receive Date: 20250124
  Receipt Date: 20250225
  Transmission Date: 20250409
  Serious: No
  Sender: BridgeBio Pharma
  Company Number: US-BRIDGEBIO-24US000013

PATIENT
  Sex: Male

DRUGS (13)
  1. ACORAMIDIS [Suspect]
     Active Substance: ACORAMIDIS
     Indication: Acquired ATTR amyloidosis
     Route: 048
  2. APIXABAN [Concomitant]
     Active Substance: APIXABAN
     Route: 065
  3. ASPIRIN [Concomitant]
     Active Substance: ASPIRIN
     Route: 065
  4. ATORVASTATIN [Concomitant]
     Active Substance: ATORVASTATIN
     Route: 065
  5. BUMEX [Concomitant]
     Active Substance: BUMETANIDE
     Route: 065
  6. FARXIGA [Concomitant]
     Active Substance: DAPAGLIFLOZIN PROPANEDIOL
     Route: 065
  7. ACIDEX ADVANCE [Concomitant]
     Route: 065
  8. LEVOTHYROXINE [Concomitant]
     Active Substance: LEVOTHYROXINE
     Route: 065
  9. MEXILETINE [Concomitant]
     Active Substance: MEXILETINE
     Route: 065
  10. MIDODRINE [Concomitant]
     Active Substance: MIDODRINE
     Route: 065
  11. MIRTAZAPINE [Concomitant]
     Active Substance: MIRTAZAPINE
     Route: 065
  12. SPIRONOLACTONE [Concomitant]
     Active Substance: SPIRONOLACTONE
     Route: 065
  13. TAMSULOSIN [Concomitant]
     Active Substance: TAMSULOSIN
     Route: 065

REACTIONS (1)
  - Ageusia [Not Recovered/Not Resolved]
